FAERS Safety Report 10007169 (Version 1)
Quarter: 2014Q1

REPORT INFORMATION
  Report Type: Spontaneous
  Country: US (occurrence: US)
  Receive Date: 20140313
  Receipt Date: 20140313
  Transmission Date: 20141002
  Serious: No
  Sender: FDA-Public Use
  Company Number: US-GILEAD-2014-0096610

PATIENT
  Sex: Female

DRUGS (2)
  1. LETAIRIS [Suspect]
     Indication: PRODUCT USED FOR UNKNOWN INDICATION
     Dosage: 5 MG, QD
     Route: 065
     Dates: start: 20090701
  2. COUMADIN                           /00014802/ [Concomitant]

REACTIONS (3)
  - Nasopharyngitis [Unknown]
  - Upper respiratory tract congestion [Unknown]
  - Nasal congestion [Unknown]
